FAERS Safety Report 11150876 (Version 1)
Quarter: 2015Q2

REPORT INFORMATION
  Report Type: Spontaneous
  Country: NO (occurrence: NO)
  Receive Date: 20150601
  Receipt Date: 20150601
  Transmission Date: 20150821
  Serious: Yes (Other)
  Sender: FDA-Public Use
  Company Number: NO-JNJFOC-20150514946

PATIENT
  Age: 56 Year
  Sex: Female

DRUGS (3)
  1. MIDAZOLAM [Suspect]
     Active Substance: MIDAZOLAM\MIDAZOLAM HYDROCHLORIDE
     Indication: PRODUCT USED FOR UNKNOWN INDICATION
     Dosage: FUROSEMIDE, FENTANYL AND MIDAZOLAM ADMINISTERED TOGETHER VIA THE SAME LUMEN/PERIPHERAL VENOUS ACCESS
     Route: 041
     Dates: start: 20150420, end: 20150420
  2. FUROSEMIDE. [Suspect]
     Active Substance: FUROSEMIDE
     Indication: PRODUCT USED FOR UNKNOWN INDICATION
     Dosage: FUROSEMIDE, FENTANYL AND MIDAZOLAM ADMINISTERED TOGETHER VIA THE SAME LUMEN/PERIPHERAL VENOUS ACCESS
     Route: 041
     Dates: start: 20150420, end: 20150420
  3. FENTANYL. [Suspect]
     Active Substance: FENTANYL
     Indication: PRODUCT USED FOR UNKNOWN INDICATION
     Dosage: FUROSEMIDE, FENTANYL AND MIDAZOLAM ADMINISTERED TOGETHER VIA THE SAME LUMEN/PERIPHERAL VENOUS ACCESS
     Route: 041
     Dates: start: 20150420, end: 20150420

REACTIONS (2)
  - Medication error [Unknown]
  - Thrombophlebitis [Unknown]

NARRATIVE: CASE EVENT DATE: 20150420
